FAERS Safety Report 5001030-1 (Version None)
Quarter: 2006Q2

REPORT INFORMATION
  Report Type: 
  Country: None (occurrence: None)
  Receive Date: 20060512
  Receipt Date: 20050609
  Transmission Date: 20061013
  Serious: Yes (Hospitalization)
  Sender: FDA-Public Use
  Company Number: FR-GLAXOSMITHKLINE-B0384215A

PATIENT
  Age: 52 Year
  Sex: Male
  Weight: 69 kg

DRUGS (26)
  1. ALLOPURINOL [Suspect]
     Dosage: 100MG PER DAY
     Route: 048
     Dates: start: 20050314, end: 20050329
  2. EPIVIR [Suspect]
     Dosage: 150MG PER DAY
     Route: 048
     Dates: start: 20050523, end: 20050527
  3. RETROVIR [Suspect]
     Indication: HIV INFECTION
     Dosage: 600MG PER DAY
     Route: 048
     Dates: start: 20051020, end: 20051029
  4. VIDEX [Suspect]
     Dosage: 125MG PER DAY
     Route: 048
     Dates: start: 20050523, end: 20050527
  5. KALETRA [Suspect]
     Dosage: 6UNIT PER DAY
     Route: 048
     Dates: start: 20050523, end: 20050527
  6. ZERIT [Suspect]
     Indication: ACQUIRED IMMUNODEFICIENCY SYNDROME
     Route: 065
     Dates: start: 20050323, end: 20050329
  7. INVIRASE [Suspect]
     Indication: ACQUIRED IMMUNODEFICIENCY SYNDROME
     Route: 065
     Dates: start: 20050323, end: 20050329
  8. PIRILENE [Suspect]
     Indication: PULMONARY TUBERCULOSIS
     Route: 065
     Dates: start: 20050216, end: 20050329
  9. FUZEON [Suspect]
     Indication: HIV INFECTION
     Dosage: 180MG PER DAY
     Route: 048
     Dates: start: 20051020, end: 20051029
  10. REYATAZ [Suspect]
     Indication: HIV INFECTION
     Dosage: 400MG PER DAY
     Route: 048
     Dates: start: 20051020, end: 20051029
  11. NORVIR [Concomitant]
     Indication: ACQUIRED IMMUNODEFICIENCY SYNDROME
     Route: 065
     Dates: start: 20050323, end: 20050329
  12. AMLOR [Concomitant]
     Route: 048
     Dates: end: 20050329
  13. BISOPROLOL FUMARATE [Concomitant]
     Route: 048
     Dates: end: 20050329
  14. COAPROVEL [Concomitant]
     Route: 048
     Dates: end: 20050329
  15. LASILIX [Concomitant]
     Route: 048
  16. KAYEXALATE [Concomitant]
     Route: 065
  17. MOPRAL [Concomitant]
     Route: 065
  18. RIMIFON [Concomitant]
     Indication: PULMONARY TUBERCULOSIS
     Route: 065
     Dates: start: 20050216, end: 20050329
  19. RIFADIN [Concomitant]
     Indication: PULMONARY TUBERCULOSIS
     Route: 065
     Dates: start: 20050216, end: 20050312
  20. DEXAMBUTOL [Concomitant]
     Indication: PULMONARY TUBERCULOSIS
     Route: 065
     Dates: start: 20050216, end: 20050329
  21. SOPROL [Concomitant]
     Route: 048
     Dates: start: 20050314, end: 20050329
  22. CIFLOX [Concomitant]
     Indication: PULMONARY TUBERCULOSIS
     Route: 065
     Dates: start: 20050412
  23. EPIVIR [Concomitant]
     Indication: ACQUIRED IMMUNODEFICIENCY SYNDROME
     Route: 048
     Dates: start: 20050323, end: 20050329
  24. TRANDATE [Concomitant]
  25. HYPERIUM [Concomitant]
  26. LONOTEN [Concomitant]

REACTIONS (17)
  - BLOOD PRESSURE SYSTOLIC DECREASED [None]
  - CONJUNCTIVITIS [None]
  - CONVULSION [None]
  - CORNEAL ABSCESS [None]
  - DYSPHAGIA [None]
  - DYSPNOEA [None]
  - GENERAL PHYSICAL HEALTH DETERIORATION [None]
  - HYPERVOLAEMIA [None]
  - KERATITIS [None]
  - LACRIMATION INCREASED [None]
  - PRURITUS [None]
  - PULMONARY OEDEMA [None]
  - RENAL FAILURE [None]
  - RENAL FAILURE ACUTE [None]
  - STEVENS-JOHNSON SYNDROME [None]
  - STOMATITIS [None]
  - URTICARIA [None]
